FAERS Safety Report 14225590 (Version 1)
Quarter: 2017Q4

REPORT INFORMATION
  Report Type: Spontaneous
  Country: CA (occurrence: CA)
  Receive Date: 20171126
  Receipt Date: 20171126
  Transmission Date: 20180321
  Serious: Yes (Disabling)
  Sender: FDA-Public Use
  Company Number: None

PATIENT
  Age: 66 Year
  Sex: Female
  Weight: 86.4 kg

DRUGS (1)
  1. DIVALPROEX SODIUM. [Suspect]
     Active Substance: DIVALPROEX SODIUM
     Indication: BIPOLAR I DISORDER
     Dosage: ?          QUANTITY:1 TABLET(S);?
     Route: 048

REACTIONS (8)
  - Alopecia [None]
  - Diarrhoea [None]
  - Tremor [None]
  - Glucose tolerance impaired [None]
  - Dyspepsia [None]
  - Nausea [None]
  - Weight increased [None]
  - Coordination abnormal [None]

NARRATIVE: CASE EVENT DATE: 20171101
